FAERS Safety Report 4371072-8 (Version None)
Quarter: 2004Q2

REPORT INFORMATION
  Report Type: 
  Country: None (occurrence: None)
  Receive Date: 20040601
  Receipt Date: 20040519
  Transmission Date: 20050107
  Serious: Yes (Hospitalization)
  Sender: FDA-Public Use
  Company Number: 2004028525

PATIENT
  Age: 90 Year
  Sex: Female

DRUGS (7)
  1. DOXAZOSIN (DOXAZOSIN) [Suspect]
     Indication: HYPERTENSION
     Dosage: 8 MG (1D), ORAL
     Route: 048
     Dates: start: 20030801, end: 20040330
  2. ATENOLOL [Suspect]
     Indication: ANGINA PECTORIS
     Dosage: 50 MG (1 IN W D), ORAL
     Route: 048
     Dates: start: 20000101, end: 20040325
  3. NICORANDIL (NICORANDIL) [Concomitant]
  4. ISOSORBIDE MONONITRATE [Concomitant]
  5. CLOPIDOGREL (CLOPIDOGREL) [Concomitant]
  6. LANSOPRAZOLE [Concomitant]
  7. FERROUS GLUCONATE (FERROUS GLUCONATE0 [Concomitant]

REACTIONS (4)
  - BLOOD PRESSURE INCREASED [None]
  - ORTHOSTATIC HYPOTENSION [None]
  - SINUS BRADYCARDIA [None]
  - THYROXINE INCREASED [None]
